FAERS Safety Report 21550042 (Version 1)
Quarter: 2022Q4

REPORT INFORMATION
  Report Type: Spontaneous
  Country: KR (occurrence: KR)
  Receive Date: 20221103
  Receipt Date: 20221103
  Transmission Date: 20230113
  Serious: Yes (Other)
  Sender: FDA-Public Use
  Company Number: KR-MYLANLABS-2022M1118896

PATIENT
  Age: 66 Year
  Sex: Male

DRUGS (2)
  1. LYRICA [Suspect]
     Active Substance: PREGABALIN
     Indication: Plasma cell myeloma
     Dosage: 1 DOSAGE FORM, QD
     Route: 065
     Dates: start: 20201116, end: 20201120
  2. GABAPENTIN [Suspect]
     Active Substance: GABAPENTIN
     Indication: Plasma cell myeloma
     Dosage: 1 DOSAGE FORM, QD
     Route: 065
     Dates: start: 20200918, end: 20201120

REACTIONS (2)
  - Oedema [Recovering/Resolving]
  - Off label use [Unknown]

NARRATIVE: CASE EVENT DATE: 20201116
